FAERS Safety Report 15925746 (Version 2)
Quarter: 2019Q1

REPORT INFORMATION
  Report Type: Spontaneous
  Country: US (occurrence: US)
  Receive Date: 20190205
  Receipt Date: 20190219
  Transmission Date: 20190417
  Serious: No
  Sender: FDA-Public Use
  Company Number: US-ALLERGAN-1845165US

PATIENT
  Age: 21 Year
  Sex: Male
  Weight: 65.31 kg

DRUGS (2)
  1. BOTOX [Suspect]
     Active Substance: ONABOTULINUMTOXINA
     Dosage: 15 UNITS, SINGLE, EACH SUBMANDIBULAR GLAND
     Route: 030
     Dates: start: 20180906, end: 20180906
  2. BOTOX [Suspect]
     Active Substance: ONABOTULINUMTOXINA
     Indication: DROOLING
     Dosage: 20 UNITS, SINGLE, PAROTID GLAND
     Route: 030
     Dates: start: 20180906, end: 20180906

REACTIONS (5)
  - Mastication disorder [Not Recovered/Not Resolved]
  - Dysphonia [Not Recovered/Not Resolved]
  - Dysphagia [Unknown]
  - Choking [Not Recovered/Not Resolved]
  - Off label use [Unknown]

NARRATIVE: CASE EVENT DATE: 201809
